FAERS Safety Report 6901799-2 (Version None)
Quarter: 2010Q3

REPORT INFORMATION
  Report Type: 
  Country: None (occurrence: None)
  Receive Date: 20100802
  Receipt Date: 20100802
  Transmission Date: 20110219
  Serious: Yes (Other)
  Sender: FDA-Public Use
  Company Number: None

PATIENT
  Age: 14 Year
  Sex: Male
  Weight: 77.1115 kg

DRUGS (2)
  1. CONCERTA [Suspect]
     Indication: ATTENTION DEFICIT/HYPERACTIVITY DISORDER
     Dosage: UNKNOWN TWICE, DAILY PO
     Route: 048
     Dates: start: 20040724, end: 20090814
  2. CONCERTA [Suspect]
     Indication: DISTURBANCE IN ATTENTION
     Dosage: UNKNOWN TWICE, DAILY PO
     Route: 048
     Dates: start: 20040724, end: 20090814

REACTIONS (4)
  - IMPAIRED WORK ABILITY [None]
  - INJURY [None]
  - MUSCLE TWITCHING [None]
  - NERVOUS SYSTEM DISORDER [None]
